FAERS Safety Report 11198677 (Version 2)
Quarter: 2015Q3

REPORT INFORMATION
  Report Type: Report from Study
  Country: US (occurrence: None)
  Receive Date: 20150616
  Receipt Date: 20150701
  Transmission Date: 20151125
  Serious: Yes (Hospitalization)
  Sender: FDA-Public Use
  Company Number: AMAG201500514

PATIENT
  Age: 55 Year
  Sex: Male
  Weight: 96.6 kg

DRUGS (3)
  1. FERUMOXYTOL (ELEMENTAL IRON) INJECTION [Suspect]
     Active Substance: FERUMOXYTOL
     Indication: IRON DEFICIENCY ANAEMIA
     Dosage: 500 MG, SINGLE, INTRAVENOUS
     Route: 042
     Dates: start: 20150520, end: 20150520
  2. LEVETIRACETAM (LEVETIRACETAM) [Concomitant]
     Active Substance: LEVETIRACETAM
  3. GADOTERIDOL [Suspect]
     Active Substance: GADOTERIDOL
     Indication: NUCLEAR MAGNETIC RESONANCE IMAGING BRAIN
     Dosage: 19 ML, SINGLE, INTRAVENOUS
     Route: 042
     Dates: start: 20150519, end: 20150519

REACTIONS (2)
  - Deep vein thrombosis [None]
  - Pulmonary embolism [None]

NARRATIVE: CASE EVENT DATE: 20150526
